FAERS Safety Report 9651980 (Version 1)
Quarter: 2013Q4

REPORT INFORMATION
  Report Type: Spontaneous
  Country: US (occurrence: None)
  Receive Date: 20131028
  Receipt Date: 20131028
  Transmission Date: 20140711
  Serious: Yes (Other)
  Sender: FDA-Public Use
  Company Number: None

PATIENT
  Age: 58 Year
  Sex: Male
  Weight: 111 kg

DRUGS (13)
  1. CUBICIN [Suspect]
     Indication: OSTEOMYELITIS
     Route: 042
     Dates: start: 20131016, end: 20131022
  2. CUBICIN [Suspect]
     Indication: BACTERAEMIA
     Route: 042
     Dates: start: 20131016, end: 20131022
  3. ALPRAZOLAM [Concomitant]
  4. AMPLODIPINE [Concomitant]
  5. ASA [Concomitant]
  6. NEPHRO-VITE [Concomitant]
  7. DOCUSATE [Concomitant]
  8. EPOGEN [Concomitant]
  9. HEPARIN [Concomitant]
  10. HYDROCODONE / APAP [Concomitant]
  11. IRON SUCROSE [Concomitant]
  12. NYSTATIN POWDER [Concomitant]
  13. PANTOPRAZOLE [Concomitant]

REACTIONS (5)
  - Hepatic enzyme increased [None]
  - Hepatic steatosis [None]
  - Dialysis [None]
  - Hepatic ischaemia [None]
  - Hepatic necrosis [None]
